FAERS Safety Report 4972819-X (Version None)
Quarter: 2006Q2

REPORT INFORMATION
  Report Type: 
  Country: None (occurrence: None)
  Receive Date: 20060414
  Receipt Date: 20060404
  Transmission Date: 20061013
  Serious: Yes (Hospitalization)
  Sender: FDA-Public Use
  Company Number: FR-JNJFOC-20051205765

PATIENT
  Sex: Female

DRUGS (9)
  1. IXPRIM [Suspect]
     Dosage: 2 TABLETS DAILY REPORTED ALSO AS 60 DF
     Route: 048
  2. COTAREG [Suspect]
     Route: 048
  3. COTAREG [Suspect]
     Indication: DRUG USE FOR UNKNOWN INDICATION
     Route: 048
  4. DIAMICRON [Concomitant]
     Route: 048
  5. GLUCOPHAGE [Concomitant]
     Route: 048
  6. CELIPROLOL [Concomitant]
     Route: 048
  7. MOPRAL [Concomitant]
     Route: 048
  8. SACCHAROMYCES BOULARDII [Concomitant]
     Indication: GASTROENTERITIS
     Route: 048
  9. ERCEFURYL [Concomitant]
     Indication: GASTROENTERITIS
     Route: 048

REACTIONS (10)
  - DEHYDRATION [None]
  - DIARRHOEA [None]
  - DISORIENTATION [None]
  - DISTURBANCE IN ATTENTION [None]
  - GASTROENTERITIS [None]
  - HYPONATRAEMIA [None]
  - NAUSEA [None]
  - OVERDOSE [None]
  - VERTIGO [None]
  - VOMITING [None]
